FAERS Safety Report 6663897-0 (Version None)
Quarter: 2010Q2

REPORT INFORMATION
  Report Type: 
  Country: None (occurrence: None)
  Receive Date: 20100401
  Receipt Date: 20100325
  Transmission Date: 20101027
  Serious: Yes (Hospitalization)
  Sender: FDA-Public Use
  Company Number: AU-B.I. PHARMACEUTICALS,INC./RIDGEFIELD-2010-AU-00234AU

PATIENT
  Age: 92 Year
  Sex: Male

DRUGS (2)
  1. SPIRIVA [Suspect]
  2. PROZAC [Suspect]
     Route: 055

REACTIONS (2)
  - OBSTRUCTIVE AIRWAYS DISORDER [None]
  - RESPIRATORY DISTRESS [None]
